FAERS Safety Report 7593854-1 (Version None)
Quarter: 2011Q3

REPORT INFORMATION
  Report Type: 
  Country: None (occurrence: None)
  Receive Date: 20110706
  Receipt Date: 20110705
  Transmission Date: 20111222
  Serious: Yes (Hospitalization, Disabling, Other)
  Sender: FDA-Public Use
  Company Number: US-PFIZER INC-2011150199

PATIENT
  Sex: Female
  Weight: 46.712 kg

DRUGS (3)
  1. SOMA [Concomitant]
     Indication: MUSCLE RELAXANT THERAPY
     Dosage: 350 MG, UNK
  2. LIPITOR [Suspect]
     Indication: BLOOD CHOLESTEROL ABNORMAL
     Dosage: 40 MG, DAILY
     Route: 048
     Dates: start: 19950101
  3. CELEXA [Concomitant]
     Indication: DEPRESSION
     Dosage: 40 MG, DAILY

REACTIONS (5)
  - MUSCULAR WEAKNESS [None]
  - HIP FRACTURE [None]
  - ARTHROPATHY [None]
  - PAIN [None]
  - PELVIC FRACTURE [None]
